FAERS Safety Report 12011211 (Version 1)
Quarter: 2016Q1

REPORT INFORMATION
  Report Type: Spontaneous
  Country: KR (occurrence: KR)
  Receive Date: 20160205
  Receipt Date: 20160205
  Transmission Date: 20160526
  Serious: Yes (Hospitalization)
  Sender: FDA-Public Use
  Company Number: KR-JNJFOC-20160121772

PATIENT
  Age: 77 Year
  Sex: Male
  Weight: 45 kg

DRUGS (9)
  1. ZOPYRIN [Concomitant]
     Indication: RHEUMATOID ARTHRITIS
     Route: 048
     Dates: start: 20151020
  2. VITIS VINIFERA (GRAPE) FLOWER EXTRACT [Concomitant]
     Active Substance: VITIS VINIFERA FLOWERING TOP
     Indication: OEDEMA
     Route: 048
     Dates: start: 20151020
  3. SIMPONI [Suspect]
     Active Substance: GOLIMUMAB
     Indication: RHEUMATOID ARTHRITIS
     Route: 058
     Dates: start: 20140918
  4. ENSITRA [Concomitant]
     Indication: RHEUMATOID ARTHRITIS
     Route: 048
     Dates: start: 20151020, end: 20160110
  5. MELCOX [Concomitant]
     Indication: RHEUMATOID ARTHRITIS
     Route: 048
     Dates: start: 20150603, end: 20160110
  6. OSMETONE [Concomitant]
     Indication: RHEUMATOID ARTHRITIS
     Route: 048
     Dates: start: 20160111
  7. ULTRACET SEMI [Concomitant]
     Indication: RHEUMATOID ARTHRITIS
     Route: 048
     Dates: start: 20160111
  8. GANATON [Concomitant]
     Active Substance: ITOPRIDE
     Indication: GASTRITIS
     Route: 048
  9. PD [Concomitant]
     Indication: RHEUMATOID ARTHRITIS
     Route: 048
     Dates: start: 20150729

REACTIONS (2)
  - Road traffic accident [Recovered/Resolved]
  - Rib fracture [Recovered/Resolved]

NARRATIVE: CASE EVENT DATE: 201512
